FAERS Safety Report 9510777 (Version 2)
Quarter: 2013Q4

REPORT INFORMATION
  Report Type: Spontaneous
  Country: BR (occurrence: BR)
  Receive Date: 20130910
  Receipt Date: 20131009
  Transmission Date: 20140711
  Serious: Yes (Hospitalization)
  Sender: FDA-Public Use
  Company Number: BR-NOVOPROD-386878

PATIENT
  Age: 84 Year
  Sex: Male
  Weight: 70 kg

DRUGS (10)
  1. NOVOMIX 30 PENFILL [Suspect]
     Indication: TYPE 2 DIABETES MELLITUS
     Dosage: UNK
     Route: 058
     Dates: start: 20130808
  2. NOVOMIX 30 PENFILL [Suspect]
     Dosage: 28 IU, QD
     Route: 058
  3. NOVOMIX 30 PENFILL [Suspect]
     Dosage: 38 IU, QD (28 IU IN THE MORNING AND 10 IU IN THE EVENING)
     Route: 058
     Dates: end: 20130824
  4. GLUCOFORMIN [Concomitant]
     Indication: TYPE 2 DIABETES MELLITUS
     Dosage: 3 TABS AND A HALF
     Route: 048
     Dates: start: 1993, end: 20130808
  5. ATORVASTATIN [Concomitant]
     Indication: BLOOD CHOLESTEROL ABNORMAL
     Dosage: 1 TAB, UNKNOWN
     Route: 048
  6. XARELTO [Concomitant]
     Indication: ANTICOAGULANT THERAPY
     Dosage: 1 TAB, UNK
     Route: 048
     Dates: start: 20130828
  7. TRAYENTA [Concomitant]
     Indication: TYPE 2 DIABETES MELLITUS
     Dosage: 1 TAB, UNK
     Route: 048
     Dates: start: 20130808
  8. VASOGARD [Concomitant]
     Dosage: 3 TAB FOR BLOOD CIRCULATION
     Route: 048
  9. ARADOIS [Concomitant]
     Indication: HYPERTENSION
     Dosage: 1 TAB, UNK
     Route: 048
  10. OCUVITE LUTEIN                     /06812801/ [Concomitant]
     Indication: EYE DISORDER
     Dosage: 1 TAB, UNK
     Route: 048

REACTIONS (3)
  - Hypoglycaemia [Not Recovered/Not Resolved]
  - Respiratory rate increased [Unknown]
  - Hyperglycaemia [Recovered/Resolved]
